FAERS Safety Report 10214053 (Version 1)
Quarter: 2014Q2

REPORT INFORMATION
  Report Type: Spontaneous
  Country: AR (occurrence: AR)
  Receive Date: 20140603
  Receipt Date: 20140603
  Transmission Date: 20141212
  Serious: Yes (Other)
  Sender: FDA-Public Use
  Company Number: AR-PFIZER INC-2014148967

PATIENT
  Age: 56 Year
  Sex: Male

DRUGS (1)
  1. SUNITINIB MALATE [Suspect]
     Indication: METASTATIC RENAL CELL CARCINOMA
     Dosage: 50 MG, CYCLIC (6 WEEKS: 4 WEEKS ON, 2 WEEKS OFF)
     Route: 048

REACTIONS (4)
  - Rhabdomyolysis [Unknown]
  - Acute hepatic failure [Unknown]
  - Myocardial infarction [Unknown]
  - Adrenal insufficiency [Unknown]
